FAERS Safety Report 9883710 (Version 1)
Quarter: 2014Q1

REPORT INFORMATION
  Report Type: Spontaneous
  Country: US (occurrence: US)
  Receive Date: 20140210
  Receipt Date: 20140210
  Transmission Date: 20141002
  Serious: No
  Sender: FDA-Public Use
  Company Number: US-009507513-1402USA003089

PATIENT
  Sex: Female

DRUGS (1)
  1. VYTORIN [Suspect]
     Dosage: 1 DOSE TAKEN DURING DINNER TIME
     Route: 048

REACTIONS (5)
  - Throat irritation [Unknown]
  - Product taste abnormal [Unknown]
  - Malaise [Unknown]
  - Drug dose omission [Unknown]
  - Throat irritation [Unknown]
